FAERS Safety Report 5672743-3 (Version None)
Quarter: 2008Q1

REPORT INFORMATION
  Report Type: 
  Country: None (occurrence: None)
  Receive Date: 20080317
  Receipt Date: 20080306
  Transmission Date: 20080703
  Serious: Yes (Other)
  Sender: FDA-Public Use
  Company Number: DSU-2008-00344

PATIENT
  Age: 65 Year
  Sex: Male
  Weight: 90.7194 kg

DRUGS (5)
  1. BENICAR [Suspect]
     Indication: HYPERTENSION
     Dosage: 20 MG (20 MG, QD), PER ORAL; 20 MG (20 MG, QD), PER ORAL
     Route: 048
     Dates: start: 20080201, end: 20080219
  2. BENICAR [Suspect]
     Indication: HYPERTENSION
     Dosage: 20 MG (20 MG, QD), PER ORAL; 20 MG (20 MG, QD), PER ORAL
     Route: 048
     Dates: start: 20080225
  3. BENICAR HCT [Suspect]
     Indication: HYPERTENSION
     Dosage: 20/12.5 MG (QD), PER ORAL
     Route: 048
     Dates: start: 20080220, end: 20080224
  4. TOPROL XL (METOPROLOL SUCCINATE) (50 MILLIGRAM, TABLET) (METOPROLOL SU [Concomitant]
  5. COUMADIN [Concomitant]

REACTIONS (2)
  - BLOOD SODIUM DECREASED [None]
  - MUSCLE SPASMS [None]
